FAERS Safety Report 5225305-6 (Version None)
Quarter: 2007Q1

REPORT INFORMATION
  Report Type: 
  Country: None (occurrence: None)
  Receive Date: 20070131
  Receipt Date: 20070122
  Transmission Date: 20070707
  Serious: Yes (Other)
  Sender: FDA-Public Use
  Company Number: US-AVENTIS-200710514US

PATIENT
  Age: 60 Year
  Sex: Female

DRUGS (7)
  1. LANTUS [Suspect]
     Indication: DIABETES MELLITUS NON-INSULIN-DEPENDENT
  2. LASIX [Concomitant]
     Dosage: DOSE: UNK
  3. LISINOPRIL [Concomitant]
     Dosage: DOSE: UNK
  4. COREG [Concomitant]
     Dosage: DOSE: UNK
  5. ASPIRIN [Concomitant]
     Dosage: DOSE: UNK
  6. NEURONTIN [Concomitant]
     Dosage: DOSE: UNK
  7. MORPHINE [Concomitant]
     Dosage: DOSE: UNK

REACTIONS (1)
  - CATARACT [None]
